FAERS Safety Report 12756368 (Version 1)
Quarter: 2016Q3

REPORT INFORMATION
  Report Type: Spontaneous
  Country: US (occurrence: US)
  Receive Date: 20160916
  Receipt Date: 20160916
  Transmission Date: 20161109
  Serious: Yes (Hospitalization)
  Sender: FDA-Public Use
  Company Number: US-RELYPSA-RLY2016002422

PATIENT
  Age: 63 Year
  Sex: Male

DRUGS (2)
  1. VELTASSA [Suspect]
     Active Substance: PATIROMER
     Indication: BLOOD POTASSIUM INCREASED
     Dosage: UNK, QD
     Route: 065
     Dates: start: 20160824, end: 2016
  2. VELTASSA [Suspect]
     Active Substance: PATIROMER
     Dosage: 1 PACKET, QOD
     Route: 065
     Dates: start: 2016, end: 201609

REACTIONS (6)
  - Pulmonary oedema [Unknown]
  - Flatulence [Recovering/Resolving]
  - Abdominal pain [Not Recovered/Not Resolved]
  - Abdominal discomfort [Not Recovered/Not Resolved]
  - Off label use [Recovered/Resolved]
  - Drug interaction [Unknown]

NARRATIVE: CASE EVENT DATE: 20160906
